FAERS Safety Report 7229681-4 (Version None)
Quarter: 2011Q1

REPORT INFORMATION
  Report Type: 
  Country: None (occurrence: None)
  Receive Date: 20110117
  Receipt Date: 20101117
  Transmission Date: 20110831
  Serious: Yes (Hospitalization)
  Sender: FDA-Public Use
  Company Number: DE-GENZYME-FLUD-1000402

PATIENT
  Age: 55 Year
  Sex: Female

DRUGS (12)
  1. CYCLOPHOSPHAMIDE [Suspect]
     Indication: CHRONIC LYMPHOCYTIC LEUKAEMIA
     Dosage: 478 MG, UNK
     Route: 065
     Dates: start: 20100705
  2. FLUDARA [Suspect]
     Dosage: 48 MG, UNK
     Route: 065
  3. CYCLOPHOSPHAMIDE [Suspect]
     Dosage: 478 MG, UNK
     Route: 065
  4. CYCLOPHOSPHAMIDE [Suspect]
     Dosage: 478 MG, UNK
     Route: 065
     Dates: start: 20100830, end: 20100903
  5. FLUDARA [Suspect]
     Dosage: 48 MG, UNK
     Route: 065
     Dates: start: 20100830, end: 20100903
  6. ACYCLOVIR [Concomitant]
     Indication: PRODUCT USED FOR UNKNOWN INDICATION
     Dosage: UNK
     Route: 065
  7. RITUXIMAB [Suspect]
     Indication: CHRONIC LYMPHOCYTIC LEUKAEMIA
     Dosage: 960 MG, UNK
     Route: 042
     Dates: start: 20100705
  8. FLUDARA [Suspect]
     Indication: CHRONIC LYMPHOCYTIC LEUKAEMIA
     Dosage: 48 MG, UNK
     Route: 042
     Dates: start: 20100705
  9. RITUXIMAB [Suspect]
     Dosage: 960 MG, UNK
     Route: 065
  10. COTRIM FORTE EU RHO [Concomitant]
     Indication: PRODUCT USED FOR UNKNOWN INDICATION
     Dosage: UNK
     Route: 065
  11. PANTOZOL [Concomitant]
     Indication: PRODUCT USED FOR UNKNOWN INDICATION
     Dosage: UNK
     Route: 065
  12. RITUXIMAB [Suspect]
     Dosage: 960 MG, UNK
     Route: 065
     Dates: start: 20100830, end: 20100903

REACTIONS (1)
  - VESTIBULAR DISORDER [None]
